FAERS Safety Report 5316207-5 (Version None)
Quarter: 2007Q2

REPORT INFORMATION
  Report Type: 
  Country: None (occurrence: None)
  Receive Date: 20070503
  Receipt Date: 20070427
  Transmission Date: 20071010
  Serious: Yes (Death)
  Sender: FDA-Public Use
  Company Number: GB-ROXANE LABORATORIES, INC-2007-BP-05809RO

PATIENT
  Age: 63 Year
  Sex: Male

DRUGS (2)
  1. AZATHIOPRINE [Suspect]
     Indication: IMMUNOSUPPRESSION
     Route: 048
     Dates: end: 20060201
  2. CYCLOSPORINE [Suspect]
     Indication: IMMUNOSUPPRESSION
     Route: 048

REACTIONS (4)
  - HEPATORENAL FAILURE [None]
  - LYMPH NODE PALPABLE [None]
  - METASTASES TO LIVER [None]
  - NEUROENDOCRINE CARCINOMA OF THE SKIN [None]
